FAERS Safety Report 24279896 (Version 3)
Quarter: 2024Q4

REPORT INFORMATION
  Report Type: Spontaneous
  Country: US (occurrence: US)
  Receive Date: 20240904
  Receipt Date: 20241004
  Transmission Date: 20250114
  Serious: Yes (Congenital Anomaly)
  Sender: SANOFI AVENTIS
  Company Number: US-SANOFI-02199394

PATIENT
  Age: 63 Year
  Sex: Male

DRUGS (2)
  1. DUPIXENT [Suspect]
     Active Substance: DUPILUMAB
     Indication: Asthma
     Dosage: 400 MG
     Route: 058
     Dates: start: 20240807, end: 20240807
  2. DUPIXENT [Suspect]
     Active Substance: DUPILUMAB
     Dosage: 200 MG
     Route: 058
     Dates: start: 20240820, end: 20240827

REACTIONS (7)
  - Pharyngeal paraesthesia [Recovered/Resolved]
  - Paraesthesia oral [Recovered/Resolved]
  - Pharyngeal hypoaesthesia [Recovered/Resolved]
  - Hypoaesthesia oral [Recovered/Resolved]
  - Pain [Unknown]
  - Myalgia [Recovered/Resolved]
  - Injection site pain [Unknown]

NARRATIVE: CASE EVENT DATE: 20240807
